FAERS Safety Report 23932550 (Version 1)
Quarter: 2024Q2

REPORT INFORMATION
  Report Type: Spontaneous
  Country: CN (occurrence: CN)
  Receive Date: 20240603
  Receipt Date: 20240603
  Transmission Date: 20240715
  Serious: Yes (Hospitalization, Other)
  Sender: FDA-Public Use
  Company Number: CN-EPICPHARMA-CN-2024EPCLIT00581

PATIENT
  Age: 3 Year
  Sex: Male

DRUGS (1)
  1. CEFTRIAXONE SODIUM [Suspect]
     Active Substance: CEFTRIAXONE SODIUM
     Indication: Bronchitis
     Route: 042

REACTIONS (6)
  - Autoimmune haemolytic anaemia [Recovered/Resolved]
  - Myocardial injury [Recovered/Resolved]
  - Liver injury [Recovered/Resolved]
  - Cholelithiasis [Recovered/Resolved]
  - Nephrolithiasis [Recovered/Resolved]
  - Haemolytic anaemia [Recovered/Resolved]
